FAERS Safety Report 20834446 (Version 1)
Quarter: 2022Q2

REPORT INFORMATION
  Report Type: Spontaneous
  Country: US (occurrence: None)
  Receive Date: 20220513
  Receipt Date: 20220513
  Transmission Date: 20220721
  Serious: Yes (Hospitalization)
  Sender: FDA-Public Use
  Company Number: None

PATIENT
  Sex: Male

DRUGS (1)
  1. RETEVMO [Suspect]
     Active Substance: SELPERCATINIB
     Indication: Lung carcinoma cell type unspecified stage 0
     Dosage: 160 MG TWICE DAILY ORAL?
     Route: 048
     Dates: start: 20220414

REACTIONS (5)
  - Dry mouth [None]
  - Urinary tract infection [None]
  - Urosepsis [None]
  - Decreased appetite [None]
  - Fatigue [None]
